FAERS Safety Report 18405758 (Version 2)
Quarter: 2020Q4

REPORT INFORMATION
  Report Type: Spontaneous
  Country: GB (occurrence: GB)
  Receive Date: 20201020
  Receipt Date: 20201021
  Transmission Date: 20210114
  Serious: Yes (Life-Threatening, Other)
  Sender: FDA-Public Use
  Company Number: GB-ACS-001821

PATIENT
  Age: 12 Year
  Sex: Female

DRUGS (11)
  1. CREON [Concomitant]
     Active Substance: PANCRELIPASE AMYLASE\PANCRELIPASE LIPASE\PANCRELIPASE PROTEASE
     Route: 065
  2. CISAPRIDE [Concomitant]
     Active Substance: CISAPRIDE
     Route: 065
  3. FLUTICASONE. [Concomitant]
     Active Substance: FLUTICASONE
     Route: 055
  4. SALBUTAMOL [Concomitant]
     Active Substance: ALBUTEROL
     Route: 055
  5. VITAMIN E [Concomitant]
     Active Substance: .ALPHA.-TOCOPHEROL
     Route: 065
  6. CEFTAZIDIME. [Suspect]
     Active Substance: CEFTAZIDIME
     Indication: STAPHYLOCOCCAL INFECTION
     Dosage: GIVEN 8-HOURLY
     Route: 042
  7. DNASE NEBULIZER [Concomitant]
     Route: 065
  8. TOBRAMYCIN. [Concomitant]
     Active Substance: TOBRAMYCIN
     Indication: STAPHYLOCOCCAL INFECTION
     Dosage: GIVEN 8-HOURLY; PREVIOUSLY STARTING DOSE: 4.5 MG/KG/DAY
     Route: 042
  9. KETOVITE [Concomitant]
     Active Substance: VITAMINS
     Route: 065
  10. COLOMYCIN [Concomitant]
     Indication: STAPHYLOCOCCAL INFECTION
     Dosage: 0.6 MEGA UNITS, 3X/DAY, GIVEN 8-HOURLY
     Route: 042
  11. GAVISCON PLUS [Concomitant]
     Route: 065

REACTIONS (2)
  - Pyrexia [Recovered/Resolved]
  - Myelosuppression [Recovered/Resolved]
